FAERS Safety Report 7096242-X (Version None)
Quarter: 2010Q4

REPORT INFORMATION
  Report Type: 
  Country: None (occurrence: None)
  Receive Date: 20101103
  Receipt Date: 20101025
  Transmission Date: 20110411
  Serious: Yes (Hospitalization)
  Sender: FDA-Public Use
  Company Number: 2010100043

PATIENT
  Age: 11 Year
  Sex: Male
  Weight: 18.5 kg

DRUGS (5)
  1. TALOXA (FELBATMATE [Suspect]
     Indication: LENNOX-GASTAUT SYNDROME
     Dosage: 52 MG/KG (4 MILLILITER, 2 IN 1 D)
  2. CLONAZEPAM [Concomitant]
  3. NEXIUM [Concomitant]
  4. DEPAKINE (VALPROATE ACID) [Concomitant]
  5. LAMICTAL [Concomitant]

REACTIONS (3)
  - BLOOD CREATININE DECREASED [None]
  - BLOOD URINE PRESENT [None]
  - CRYSTALLURIA [None]
